FAERS Safety Report 22326674 (Version 1)
Quarter: 2023Q2

REPORT INFORMATION
  Report Type: Spontaneous
  Country: US (occurrence: US)
  Receive Date: 20230516
  Receipt Date: 20230516
  Transmission Date: 20230722
  Serious: No
  Sender: FDA-Public Use
  Company Number: US-RADIUS HEALTH INC.-2022US002839

PATIENT
  Sex: Female

DRUGS (2)
  1. TYMLOS [Suspect]
     Active Substance: ABALOPARATIDE
     Indication: Osteoporosis postmenopausal
     Dosage: 80 MICROGRAM, QD
     Route: 058
     Dates: start: 20220611
  2. CABERGOLINE [Concomitant]
     Active Substance: CABERGOLINE
     Indication: Product used for unknown indication

REACTIONS (12)
  - Feeling abnormal [Unknown]
  - Tinnitus [Unknown]
  - Blood pressure increased [Unknown]
  - Fear of injection [Not Recovered/Not Resolved]
  - Injection site discolouration [Unknown]
  - Heart rate increased [Unknown]
  - Back pain [Unknown]
  - Product dose omission issue [Unknown]
  - Injection site haemorrhage [Unknown]
  - Injection site pruritus [Unknown]
  - Incorrect product administration duration [Not Recovered/Not Resolved]
  - Injection site pain [Unknown]
